FAERS Safety Report 9682215 (Version 4)
Quarter: 2014Q2

REPORT INFORMATION
  Report Type: Spontaneous
  Country: US (occurrence: US)
  Receive Date: 20131111
  Receipt Date: 20140429
  Transmission Date: 20141212
  Serious: Yes (Hospitalization, Other)
  Sender: FDA-Public Use
  Company Number: US-ROCHE-1301932

PATIENT
  Sex: Female

DRUGS (5)
  1. XELODA [Suspect]
     Indication: BREAST CANCER
     Dosage: 3 TABLETS TWICE A DAY FOR 14 DAYS ON, 7 DAYS OFF
     Route: 065
     Dates: start: 20131009
  2. XELODA [Suspect]
     Dosage: 3 TABS 14 DAYS ON AND 7 DAYS OFF
     Route: 048
     Dates: start: 20131010
  3. BYSTOLIC [Concomitant]
  4. LOSARTAN [Concomitant]
  5. XARELTO [Concomitant]
     Indication: THROMBOSIS PROPHYLAXIS
     Route: 048
     Dates: start: 20131010

REACTIONS (7)
  - Haemorrhage [Unknown]
  - Frequent bowel movements [Unknown]
  - Diarrhoea [Unknown]
  - Pulmonary embolism [Unknown]
  - Muscular weakness [Not Recovered/Not Resolved]
  - Paraesthesia [Not Recovered/Not Resolved]
  - Headache [Not Recovered/Not Resolved]
